FAERS Safety Report 24173864 (Version 1)
Quarter: 2024Q3

REPORT INFORMATION
  Report Type: Spontaneous
  Country: AT (occurrence: AT)
  Receive Date: 20240805
  Receipt Date: 20240805
  Transmission Date: 20241017
  Serious: Yes (Other)
  Sender: ACCORD
  Company Number: AT-Accord-438975

PATIENT
  Sex: Male

DRUGS (2)
  1. AZACITIDINE [Suspect]
     Active Substance: AZACITIDINE
     Indication: VEXAS syndrome
  2. CORTISONE [Concomitant]
     Active Substance: CORTISONE
     Indication: VEXAS syndrome

REACTIONS (2)
  - Delirium [Unknown]
  - Off label use [Unknown]
